FAERS Safety Report 20963687 (Version 1)
Quarter: 2022Q2

REPORT INFORMATION
  Report Type: Spontaneous
  Country: JP (occurrence: JP)
  Receive Date: 20220615
  Receipt Date: 20220615
  Transmission Date: 20220721
  Serious: Yes (Other)
  Sender: FDA-Public Use
  Company Number: JP-PFIZER INC-202200806212

PATIENT
  Age: 5 Decade
  Sex: Male
  Weight: 62 kg

DRUGS (5)
  1. FLUCONAZOLE [Suspect]
     Active Substance: FLUCONAZOLE
     Indication: Cryptococcal meningoencephalitis
     Dosage: 400 MG, DAILY
     Route: 048
  2. FLUCYTOSINE [Suspect]
     Active Substance: FLUCYTOSINE
     Indication: Cryptococcal meningoencephalitis
     Dosage: 100 MG/KG, DAILY
  3. FLUCYTOSINE [Suspect]
     Active Substance: FLUCYTOSINE
     Dosage: 50 MG/KG, DAILY
  4. PREDNISOLONE [Concomitant]
     Active Substance: PREDNISOLONE
     Dosage: 1 MG/KG, DAILY
  5. AMPHOTERICIN B [Concomitant]
     Active Substance: AMPHOTERICIN B
     Dosage: 6 MG/KG/DAY

REACTIONS (1)
  - Renal impairment [Unknown]
